FAERS Safety Report 6054470-6 (Version None)
Quarter: 2009Q1

REPORT INFORMATION
  Report Type: 
  Country: None (occurrence: None)
  Receive Date: 20090123
  Receipt Date: 20090123
  Transmission Date: 20090719
  Serious: Yes (Other)
  Sender: FDA-Public Use
  Company Number: None

PATIENT
  Sex: Female

DRUGS (1)
  1. MESTINON [Suspect]
     Indication: MYASTHENIA GRAVIS
     Dosage: 60 MG TID PO
     Route: 048
     Dates: start: 19940101, end: 19960101

REACTIONS (3)
  - DIARRHOEA [None]
  - DRUG EFFECT DECREASED [None]
  - PRODUCT QUALITY ISSUE [None]
